FAERS Safety Report 8825240 (Version 1)
Quarter: 2012Q4

REPORT INFORMATION
  Report Type: 
  Country: JP (occurrence: JP)
  Receive Date: 20121004
  Receipt Date: 20121004
  Transmission Date: 20130627
  Serious: Yes (Hospitalization)
  Sender: FDA-Public Use
  Company Number: JP-AMGEN-JPNCT2012062884

PATIENT
  Age: 68 Year
  Sex: Male

DRUGS (10)
  1. PANITUMUMAB [Suspect]
     Indication: COLORECTAL CANCER
     Dosage: 350 mg, q2wk
     Route: 041
     Dates: start: 20120130
  2. PANITUMUMAB [Suspect]
     Dosage: UNK UNK, q2wk
     Route: 041
  3. OXALIPLATIN [Concomitant]
     Indication: COLORECTAL CANCER
     Dosage: UNK UNK, q2wk
     Route: 041
     Dates: start: 20120130
  4. OXALIPLATIN [Concomitant]
     Dosage: UNK UNK, q2wk
     Route: 041
     Dates: start: 20120409
  5. FLUOROURACIL [Concomitant]
     Indication: COLORECTAL CANCER
     Route: 040
     Dates: start: 20120130
  6. FLUOROURACIL [Concomitant]
     Route: 041
     Dates: start: 20120130
  7. FLUOROURACIL [Concomitant]
     Route: 040
     Dates: start: 20120409
  8. FLUOROURACIL [Concomitant]
     Route: 041
     Dates: start: 20120409
  9. CALCIUM LEVOFOLINATE [Concomitant]
     Indication: COLORECTAL CANCER
     Dosage: UNK
     Route: 041
     Dates: start: 20120130
  10. CALCIUM LEVOFOLINATE [Concomitant]
     Dosage: UNK
     Route: 041
     Dates: start: 20120409

REACTIONS (1)
  - Dermatitis [Recovered/Resolved]
